FAERS Safety Report 9199543 (Version 1)
Quarter: 2013Q1

REPORT INFORMATION
  Report Type: Spontaneous
  Country: JP (occurrence: JP)
  Receive Date: 20130329
  Receipt Date: 20130329
  Transmission Date: 20140127
  Serious: Yes (Other)
  Sender: FDA-Public Use
  Company Number: JP-ASTELLAS-2013JP004304

PATIENT
  Age: 11 Year
  Sex: Male

DRUGS (4)
  1. PROGRAF [Suspect]
     Indication: COLITIS ULCERATIVE
     Dosage: UNK
     Route: 048
  2. CORTICOSTEROID NOS [Concomitant]
     Indication: COLITIS ULCERATIVE
     Dosage: UNK
     Route: 065
  3. CORTICOSTEROID NOS [Concomitant]
     Dosage: UNK
     Route: 065
  4. CYCLOSPORIN [Concomitant]
     Indication: COLITIS ULCERATIVE
     Dosage: UNK
     Route: 041

REACTIONS (2)
  - Drug ineffective for unapproved indication [Unknown]
  - Colitis ulcerative [Unknown]
